FAERS Safety Report 9102467 (Version 4)
Quarter: 2013Q2

REPORT INFORMATION
  Report Type: Spontaneous
  Country: DK (occurrence: DK)
  Receive Date: 20130219
  Receipt Date: 20130412
  Transmission Date: 20140414
  Serious: Yes (Other)
  Sender: FDA-Public Use
  Company Number: DK-JNJFOC-20130208000

PATIENT
  Sex: Female
  Weight: 115 kg

DRUGS (4)
  1. REMICADE [Suspect]
     Indication: CROHN^S DISEASE
     Dosage: DOSE ALSO REPORTED AS 500 MG; DOSE (NO.): 5
     Route: 042
     Dates: start: 20110103
  2. LINDYNETTE [Interacting]
     Indication: CONTRACEPTION
     Dosage: DOSE: 75 MG/ 30 MG
     Route: 048
     Dates: end: 201302
  3. PANTOPRAZOL [Concomitant]
     Route: 065
     Dates: start: 20121211
  4. PREDNISOLON [Concomitant]
     Route: 065
     Dates: start: 20130201, end: 20130208

REACTIONS (8)
  - Arteriosclerosis [Unknown]
  - Sensory disturbance [Unknown]
  - Embolism [Unknown]
  - Peripheral vascular disorder [Not Recovered/Not Resolved]
  - Vasculitis [Unknown]
  - Pain in extremity [Not Recovered/Not Resolved]
  - Paraesthesia [Not Recovered/Not Resolved]
  - Drug interaction [Unknown]
